FAERS Safety Report 22386217 (Version 1)
Quarter: 2023Q2

REPORT INFORMATION
  Report Type: Spontaneous
  Country: US (occurrence: None)
  Receive Date: 20230530
  Receipt Date: 20230530
  Transmission Date: 20230722
  Serious: No
  Sender: FDA-Public Use
  Company Number: 2023A120168

PATIENT
  Sex: Female

DRUGS (1)
  1. FARXIGA [Suspect]
     Active Substance: DAPAGLIFLOZIN PROPANEDIOL
     Route: 048

REACTIONS (6)
  - Pruritus [Unknown]
  - Musculoskeletal pain [Unknown]
  - Chills [Unknown]
  - Fatigue [Unknown]
  - Fungal infection [Unknown]
  - Cystitis [Unknown]
